FAERS Safety Report 11078279 (Version 1)
Quarter: 2015Q2

REPORT INFORMATION
  Report Type: Spontaneous
  Country: US (occurrence: None)
  Receive Date: 20150429
  Receipt Date: 20150429
  Transmission Date: 20150821
  Serious: No
  Sender: FDA-Public Use
  Company Number: None

PATIENT
  Age: 65 Year
  Sex: Female
  Weight: 90.72 kg

DRUGS (12)
  1. HYDROCODONE [Concomitant]
     Active Substance: HYDROCODONE
  2. HYDROCHLOROTHIAZIDE (+) LOSARTAN POTASSIUM [Concomitant]
     Active Substance: HYDROCHLOROTHIAZIDE\LOSARTAN POTASSIUM
  3. SOVALDI [Concomitant]
     Active Substance: SOFOSBUVIR
  4. VITAMIN D3 [Concomitant]
     Active Substance: CHOLECALCIFEROL
  5. DIGOXIN. [Concomitant]
     Active Substance: DIGOXIN
  6. LEVOFLOXACIN. [Concomitant]
     Active Substance: LEVOFLOXACIN
  7. RIBAVIRIN. [Concomitant]
     Active Substance: RIBAVIRIN
  8. ALPRAZOLAM. [Concomitant]
     Active Substance: ALPRAZOLAM
  9. PIOGLITAZONE [Concomitant]
     Active Substance: PIOGLITAZONE
  10. CALCIUM [Concomitant]
     Active Substance: CALCIUM
  11. RIBAVIRIN. [Suspect]
     Active Substance: RIBAVIRIN
     Indication: HEPATITIS C
     Route: 048
     Dates: start: 20150328, end: 20150427
  12. WARFARIN [Concomitant]
     Active Substance: WARFARIN

REACTIONS (16)
  - Blood glucose increased [None]
  - Vertigo [None]
  - Prothrombin time ratio decreased [None]
  - Nausea [None]
  - Abdominal pain upper [None]
  - Vision blurred [None]
  - Vomiting [None]
  - Anaemia [None]
  - International normalised ratio decreased [None]
  - Dizziness [None]
  - Eye pain [None]
  - Influenza like illness [None]
  - Photopsia [None]
  - Diarrhoea [None]
  - Headache [None]
  - Photophobia [None]

NARRATIVE: CASE EVENT DATE: 20150329
